FAERS Safety Report 7382163-1 (Version None)
Quarter: 2011Q1

REPORT INFORMATION
  Report Type: 
  Country: None (occurrence: None)
  Receive Date: 20110329
  Receipt Date: 20110322
  Transmission Date: 20110831
  Serious: Yes (Hospitalization)
  Sender: FDA-Public Use
  Company Number: FR-B.I. PHARMACEUTICALS,INC./RIDGEFIELD-2011-FF-00281FF

PATIENT
  Age: 70 Year
  Sex: Male

DRUGS (3)
  1. SIFROL [Suspect]
     Indication: PARKINSON'S DISEASE
     Route: 048
     Dates: start: 20080201
  2. AZILECT [Suspect]
     Indication: PARKINSON'S DISEASE
  3. STALEVO 100 [Suspect]
     Indication: PARKINSON'S DISEASE

REACTIONS (7)
  - DISSOCIATIVE IDENTITY DISORDER [None]
  - HALLUCINATION [None]
  - HYPERSEXUALITY [None]
  - JUDGEMENT IMPAIRED [None]
  - LIBIDO INCREASED [None]
  - SEXUAL ABUSE [None]
  - FRUSTRATION [None]
